FAERS Safety Report 21267652 (Version 1)
Quarter: 2022Q3

REPORT INFORMATION
  Report Type: Spontaneous
  Country: US (occurrence: None)
  Receive Date: 20220829
  Receipt Date: 20220829
  Transmission Date: 20221027
  Serious: Yes (Hospitalization, Other)
  Sender: FDA-Public Use
  Company Number: None

PATIENT
  Age: 73 Year
  Sex: Male

DRUGS (12)
  1. DOXYCYCLINE HYDROCHLORIDE [Suspect]
     Active Substance: DOXYCYCLINE HYDROCHLORIDE
     Indication: Bronchitis
     Dosage: FREQUENCY : TWICE A DAY;?
     Route: 048
     Dates: start: 20220525, end: 20220531
  2. CLONIDINE [Concomitant]
     Active Substance: CLONIDINE
  3. HYDRALAZINE [Concomitant]
     Active Substance: HYDRALAZINE HYDROCHLORIDE
  4. LEVOTHYROXINE [Concomitant]
     Active Substance: LEVOTHYROXINE
  5. METOPROLOL SUCCINATE [Concomitant]
     Active Substance: METOPROLOL SUCCINATE
  6. FLECAINIDE [Concomitant]
     Active Substance: FLECAINIDE
  7. XARELTO [Concomitant]
     Active Substance: RIVAROXABAN
  8. AMLODIPINE [Concomitant]
     Active Substance: AMLODIPINE BESYLATE
  9. TAMSULOSIN [Concomitant]
     Active Substance: TAMSULOSIN
  10. SPIRONOLACTONE [Concomitant]
     Active Substance: SPIRONOLACTONE
  11. PREDNISONE [Concomitant]
     Active Substance: PREDNISONE
  12. ACETAMINOPHEN [Concomitant]
     Active Substance: ACETAMINOPHEN

REACTIONS (22)
  - Infection [None]
  - Oropharyngeal pain [None]
  - Glossodynia [None]
  - Abdominal distension [None]
  - Flatulence [None]
  - Haematochezia [None]
  - Internal haemorrhage [None]
  - Haemorrhage [None]
  - Aphthous ulcer [None]
  - Dysphagia [None]
  - Pharyngeal swelling [None]
  - Constipation [None]
  - Decreased appetite [None]
  - Diarrhoea [None]
  - Dizziness [None]
  - Dyspepsia [None]
  - Ear pain [None]
  - Abdominal pain upper [None]
  - Lymphadenopathy [None]
  - Weight decreased [None]
  - Dyspnoea [None]
  - Throat irritation [None]

NARRATIVE: CASE EVENT DATE: 20220601
